FAERS Safety Report 13064632 (Version 1)
Quarter: 2016Q4

REPORT INFORMATION
  Report Type: Spontaneous
  Country: US (occurrence: US)
  Receive Date: 20161227
  Receipt Date: 20161227
  Transmission Date: 20170207
  Serious: No
  Sender: FDA-Public Use
  Company Number: US-BAYER-2016-242863

PATIENT
  Sex: Male

DRUGS (15)
  1. CLARITIN [Suspect]
     Active Substance: LORATADINE
     Indication: PRODUCT USED FOR UNKNOWN INDICATION
     Dosage: UNK
     Route: 065
  2. CENTRUM SILVER [Concomitant]
     Active Substance: MINERALS\VITAMINS
     Dosage: 1 DF, QD
     Route: 048
     Dates: start: 19000101
  3. METOPROLOL TARTRATE. [Concomitant]
     Active Substance: METOPROLOL TARTRATE
     Dosage: 1 DF, BID
  4. NORCO [Concomitant]
     Active Substance: ACETAMINOPHEN\HYDROCODONE BITARTRATE
     Dosage: 1-2 TABLET EVERY 8 HR, PRN
     Route: 048
     Dates: start: 20150928
  5. PRAVASTATIN. [Concomitant]
     Active Substance: PRAVASTATIN
     Dosage: 1 DF, QD
     Route: 048
     Dates: start: 19000101
  6. GLUCOTROL [Concomitant]
     Active Substance: GLIPIZIDE
     Dosage: 1 DF, BID
  7. LYRICA [Concomitant]
     Active Substance: PREGABALIN
     Dosage: 1 DF, BID
     Route: 048
     Dates: start: 20160531
  8. SPIRIVA [Concomitant]
     Active Substance: TIOTROPIUM BROMIDE MONOHYDRATE
     Dosage: INHALE 1 CAPSULE, QD
     Route: 045
     Dates: start: 20090610
  9. INSULIN [Concomitant]
     Active Substance: INSULIN NOS
     Dosage: 500 UNIT, 1 TIME EVERYDAY
     Route: 058
     Dates: start: 20160316
  10. LEVEMIR [Concomitant]
     Active Substance: INSULIN DETEMIR
     Dosage: 50 UNITS, NIGHTLY
     Route: 058
     Dates: start: 20150901
  11. LISINOPRIL. [Concomitant]
     Active Substance: LISINOPRIL
     Dosage: 1 DF, QD
     Route: 048
     Dates: start: 20091229
  12. VENTOLIN HFA [Concomitant]
     Active Substance: ALBUTEROL SULFATE
     Dosage: 2 PUFF BY INHALATION, PRN
     Route: 045
     Dates: start: 20100324
  13. TIZANIDINE. [Concomitant]
     Active Substance: TIZANIDINE
     Dosage: 1 DF, PRN
     Route: 048
     Dates: start: 20160323
  14. FISH OIL [Concomitant]
     Active Substance: FISH OIL
     Dosage: 2 DF, QD
     Route: 048
     Dates: start: 20110708
  15. NITROSTAT [Concomitant]
     Active Substance: NITROGLYCERIN
     Indication: PAIN
     Dosage: 3 DF, IN 15 MIN
     Dates: start: 20070214

REACTIONS (2)
  - Hallucination [Unknown]
  - Drug hypersensitivity [Unknown]
